FAERS Safety Report 16465868 (Version 3)
Quarter: 2019Q3

REPORT INFORMATION
  Report Type: Spontaneous
  Country: US (occurrence: US)
  Receive Date: 20190621
  Receipt Date: 20190709
  Transmission Date: 20191004
  Serious: Yes (Hospitalization, Other)
  Sender: FDA-Public Use
  Company Number: US-ACTELION-A-NJ2019-189275

PATIENT
  Age: 78 Year
  Sex: Female

DRUGS (3)
  1. OPSUMIT [Suspect]
     Active Substance: MACITENTAN
     Indication: PULMONARY ARTERIAL HYPERTENSION
     Dosage: 10 MG, QD
     Route: 048
     Dates: start: 20190415
  2. LASIX [Concomitant]
     Active Substance: FUROSEMIDE
     Dosage: UNK, QD
  3. ATENOLOL. [Concomitant]
     Active Substance: ATENOLOL
     Dosage: 25 MG, QD

REACTIONS (8)
  - Haemoglobin decreased [Recovering/Resolving]
  - Dyspnoea [Recovering/Resolving]
  - Peripheral swelling [Unknown]
  - Anaemia [Recovering/Resolving]
  - Back pain [Unknown]
  - Cystitis [Recovering/Resolving]
  - Dizziness [Recovering/Resolving]
  - Fatigue [Not Recovered/Not Resolved]

NARRATIVE: CASE EVENT DATE: 201904
